FAERS Safety Report 11874618 (Version 1)
Quarter: 2015Q4

REPORT INFORMATION
  Report Type: Spontaneous
  Country: US (occurrence: US)
  Receive Date: 20151229
  Receipt Date: 20151229
  Transmission Date: 20160305
  Serious: Yes (Other)
  Sender: FDA-Public Use
  Company Number: US-CIPLA LTD.-2015US09616

PATIENT

DRUGS (7)
  1. RISPERIDONE. [Suspect]
     Active Substance: RISPERIDONE
     Dosage: 8 MG, QD FROM 36 WEEKS
     Route: 064
  2. CHLORPROMAZINE. [Suspect]
     Active Substance: CHLORPROMAZINE
     Route: 064
  3. SULPIRIDE [Suspect]
     Active Substance: SULPIRIDE
     Route: 064
  4. HALOPERIDOL. [Suspect]
     Active Substance: HALOPERIDOL
     Route: 064
  5. CLONAZEPAM. [Suspect]
     Active Substance: CLONAZEPAM
     Route: 064
  6. RISPERIDONE. [Suspect]
     Active Substance: RISPERIDONE
     Indication: PSYCHOTIC DISORDER
     Dosage: UNK FOR FIRST 6.5 WEEKS
     Route: 064
  7. DIAZEPAM. [Suspect]
     Active Substance: DIAZEPAM
     Route: 064

REACTIONS (4)
  - Foetal exposure during pregnancy [Unknown]
  - Somnolence [Unknown]
  - Feeding disorder of infancy or early childhood [Unknown]
  - Hypotonia [Unknown]
